FAERS Safety Report 20940787 (Version 2)
Quarter: 2022Q4

REPORT INFORMATION
  Report Type: Spontaneous
  Country: PL (occurrence: PL)
  Receive Date: 20220609
  Receipt Date: 20221027
  Transmission Date: 20230113
  Serious: Yes (Death, Hospitalization, Other)
  Sender: FDA-Public Use
  Company Number: PL-NOVARTISPH-NVSC2022PL131926

PATIENT
  Age: 69 Year
  Sex: Male

DRUGS (3)
  1. CISPLATIN [Suspect]
     Active Substance: CISPLATIN
     Indication: Lung adenocarcinoma
     Dosage: 75 DOSAGE FORM, Q3W (75 MG/M2, EVERY 21 DAYS)
     Route: 042
     Dates: start: 20210325
  2. PEMETREXED [Suspect]
     Active Substance: PEMETREXED
     Indication: Lung adenocarcinoma
     Dosage: 500 DOSAGE FORM, Q3W (500 MG/M2, EVERY 21 DAYS)
     Route: 042
     Dates: start: 20210325
  3. PEMBROLIZUMAB [Suspect]
     Active Substance: PEMBROLIZUMAB
     Indication: Lung adenocarcinoma
     Dosage: 200 MG, Q3W
     Route: 042
     Dates: start: 20210325, end: 202111

REACTIONS (10)
  - COVID-19 [Fatal]
  - Atrial fibrillation [Recovered/Resolved]
  - Neutropenia [Unknown]
  - Lumbar vertebral fracture [Unknown]
  - Malignant neoplasm progression [Unknown]
  - Anaemia [Unknown]
  - Nausea [Unknown]
  - Haematotoxicity [Unknown]
  - Decreased appetite [Unknown]
  - Fatigue [Unknown]

NARRATIVE: CASE EVENT DATE: 20210101
